FAERS Safety Report 24721314 (Version 1)
Quarter: 2024Q4

REPORT INFORMATION
  Report Type: Spontaneous
  Country: SK (occurrence: SK)
  Receive Date: 20241211
  Receipt Date: 20241211
  Transmission Date: 20250115
  Serious: Yes (Death, Other)
  Sender: TEVA
  Company Number: SK-SANDOZ-SDZ2024SK095579

PATIENT
  Sex: Female

DRUGS (9)
  1. CAPECITABINE [Suspect]
     Active Substance: CAPECITABINE
     Indication: Metastases to lung
     Dosage: UNK
     Route: 065
  2. VINORELBINE [Suspect]
     Active Substance: VINORELBINE TARTRATE
     Indication: Metastases to lung
     Route: 065
  3. EXEMESTANE [Suspect]
     Active Substance: EXEMESTANE
     Indication: Metastases to lung
     Dosage: UNK
     Route: 065
  4. RIBOCICLIB [Suspect]
     Active Substance: RIBOCICLIB
     Indication: Metastases to lung
     Dosage: UNK
     Route: 065
     Dates: start: 20221130, end: 20240301
  5. DENOSUMAB [Suspect]
     Active Substance: DENOSUMAB
     Indication: Metastases to lung
     Dosage: UNK
     Route: 065
     Dates: start: 20221130
  6. DOCETAXEL [Suspect]
     Active Substance: DOCETAXEL
     Indication: Metastases to lung
     Dosage: UNK
     Route: 065
  7. PACLITAXEL [Concomitant]
     Active Substance: PACLITAXEL
     Indication: Product used for unknown indication
     Dosage: MONO WEEKLY WERE ADMINISTERED WITH PROMPT REGRESSION OF SYMPTOMS
     Route: 065
  8. FULVESTRANT [Suspect]
     Active Substance: FULVESTRANT
     Indication: Metastases to lung
     Dosage: UNK
     Route: 065
     Dates: start: 20221130
  9. EVEROLIMUS [Suspect]
     Active Substance: EVEROLIMUS
     Indication: Metastases to lung
     Dosage: UNK
     Route: 065

REACTIONS (10)
  - Metastases to lung [Fatal]
  - Leukopenia [Unknown]
  - Disease progression [Fatal]
  - Drug ineffective [Unknown]
  - Ascites [Unknown]
  - Dyspnoea [Unknown]
  - Anaemia [Unknown]
  - Enterocolitis [Unknown]
  - Dehydration [Unknown]
  - Disease progression [Unknown]
